FAERS Safety Report 6392214-9 (Version None)
Quarter: 2009Q4

REPORT INFORMATION
  Report Type: 
  Country: None (occurrence: None)
  Receive Date: 20091005
  Receipt Date: 20090922
  Transmission Date: 20100525
  Serious: Yes (Hospitalization)
  Sender: FDA-Public Use
  Company Number: 2009AL006173

PATIENT
  Age: 82 Year
  Sex: Male

DRUGS (2)
  1. OXAZEPAM [Suspect]
     Indication: DEPRESSION
  2. ESCITALOPRAM [Concomitant]

REACTIONS (20)
  - APRAXIA [None]
  - BALANCE DISORDER [None]
  - DELIRIUM [None]
  - DISORIENTATION [None]
  - FALL [None]
  - GAIT DISTURBANCE [None]
  - ILLUSION [None]
  - LOSS OF CONSCIOUSNESS [None]
  - LUNG ABSCESS [None]
  - MULTIPLE DRUG OVERDOSE INTENTIONAL [None]
  - NORMOCHROMIC NORMOCYTIC ANAEMIA [None]
  - PLEURAL EFFUSION [None]
  - PLEURAL FIBROSIS [None]
  - PNEUMONIA ASPIRATION [None]
  - RHABDOMYOLYSIS [None]
  - SERRATIA INFECTION [None]
  - SPUTUM CULTURE POSITIVE [None]
  - STAPHYLOCOCCAL INFECTION [None]
  - STENOTROPHOMONAS INFECTION [None]
  - SUICIDE ATTEMPT [None]
